FAERS Safety Report 12977161 (Version 1)
Quarter: 2016Q4

REPORT INFORMATION
  Report Type: Spontaneous
  Country: US (occurrence: US)
  Receive Date: 20161128
  Receipt Date: 20161128
  Transmission Date: 20170207
  Serious: No
  Sender: FDA-Public Use
  Company Number: US-009507513-1611USA003386

PATIENT
  Age: 18 Year
  Sex: Female
  Weight: 64.85 kg

DRUGS (2)
  1. IBUPROFEN. [Concomitant]
     Active Substance: IBUPROFEN
     Dosage: UNK
  2. NEXPLANON [Suspect]
     Active Substance: ETONOGESTREL
     Indication: CONTRACEPTION
     Dosage: UNK, 3 YEARS
     Route: 059
     Dates: start: 20160604

REACTIONS (4)
  - Back pain [Unknown]
  - Muscle spasms [Unknown]
  - Vaginal haemorrhage [Unknown]
  - Headache [Unknown]

NARRATIVE: CASE EVENT DATE: 20160618
